FAERS Safety Report 6963791-1 (Version None)
Quarter: 2010Q3

REPORT INFORMATION
  Report Type: 
  Country: None (occurrence: None)
  Receive Date: 20100902
  Receipt Date: 20100820
  Transmission Date: 20110219
  Serious: Yes (Hospitalization, Other)
  Sender: FDA-Public Use
  Company Number: US-PFIZER INC-2008085731

PATIENT
  Sex: Female
  Weight: 54 kg

DRUGS (11)
  1. DILANTIN [Suspect]
     Indication: CONVULSION
     Dosage: UNK
     Route: 048
     Dates: start: 20070101, end: 20070717
  2. DILANTIN [Suspect]
     Dosage: 50 MG, MORNING
     Route: 048
     Dates: start: 20070602
  3. DILANTIN [Suspect]
     Dosage: 400 MG, NIGHTLY
     Route: 048
     Dates: start: 20070603, end: 20070717
  4. DILANTIN [Suspect]
     Dosage: 1G AT 100 ML/HR
     Route: 042
     Dates: start: 20070604, end: 20070717
  5. NAPROSYN [Suspect]
     Dosage: 500 MG, 2X/DAY
  6. KEPPRA [Concomitant]
     Indication: CONVULSION
     Dosage: 1000 MG, 2X/DAY
     Route: 048
     Dates: start: 20070720
  7. KEPPRA [Concomitant]
     Dosage: 1500 MG, UNK
     Route: 048
     Dates: start: 20070818, end: 20070821
  8. POTASSIUM CHLORIDE [Concomitant]
     Dosage: UNK
     Dates: start: 20070717
  9. BUSPAR [Concomitant]
     Dosage: 5 MG, 2X/DAY
  10. PREMARIN [Concomitant]
     Dosage: 0.9 MG, 1X/DAY
  11. NORVASC [Concomitant]
     Indication: HYPERTENSION
     Dosage: 5 MG, 1X/DAY

REACTIONS (5)
  - CHEST PAIN [None]
  - HIP FRACTURE [None]
  - RESPIRATORY FAILURE [None]
  - STEVENS-JOHNSON SYNDROME [None]
  - TOXIC EPIDERMAL NECROLYSIS [None]
